FAERS Safety Report 7634072-8 (Version None)
Quarter: 2011Q3

REPORT INFORMATION
  Report Type: 
  Country: None (occurrence: None)
  Receive Date: 20110725
  Receipt Date: 20110725
  Transmission Date: 20111222
  Serious: Yes (Other)
  Sender: FDA-Public Use
  Company Number: US-ABBOTT-11P-163-0839469-00

PATIENT
  Sex: Female
  Weight: 55.842 kg

DRUGS (2)
  1. HUMIRA [Suspect]
     Route: 058
     Dates: start: 20110401
  2. HUMIRA [Suspect]
     Indication: CROHN'S DISEASE
     Route: 058
     Dates: start: 20110101, end: 20110201

REACTIONS (8)
  - INTESTINAL ULCER [None]
  - DIARRHOEA [None]
  - PYREXIA [None]
  - ABDOMINAL DISTENSION [None]
  - ABDOMINAL PAIN [None]
  - RED BLOOD CELL SEDIMENTATION RATE INCREASED [None]
  - GASTROINTESTINAL DISORDER [None]
  - COLONIC STENOSIS [None]
